FAERS Safety Report 6195695-9 (Version None)
Quarter: 2009Q2

REPORT INFORMATION
  Report Type: 
  Country: None (occurrence: None)
  Receive Date: 20090519
  Receipt Date: 20090512
  Transmission Date: 20091009
  Serious: Yes (Other)
  Sender: FDA-Public Use
  Company Number: CN-GENENTECH-279842

PATIENT
  Age: 45 Year
  Sex: Female

DRUGS (5)
  1. TRASTUZUMAB [Suspect]
     Indication: BREAST CANCER
     Dosage: 6 MG/KG, Q3W
     Route: 041
     Dates: start: 20090106, end: 20090305
  2. TRASTUZUMAB [Suspect]
     Dosage: UNK
     Dates: start: 20090501
  3. TAXOTERE [Concomitant]
     Indication: DRUG USE FOR UNKNOWN INDICATION
     Dosage: UNK
     Dates: start: 20090106, end: 20090201
  4. FUROSEMIDE [Concomitant]
     Indication: OEDEMA
     Dosage: UNK
     Dates: start: 20090101, end: 20090301
  5. PREDNISONE [Concomitant]
     Indication: OEDEMA
     Dosage: UNK
     Dates: start: 20090305, end: 20090301

REACTIONS (2)
  - OEDEMA [None]
  - PERICARDIAL EFFUSION [None]
